FAERS Safety Report 18686439 (Version 2)
Quarter: 2021Q1

REPORT INFORMATION
  Report Type: Spontaneous
  Country: GB (occurrence: GB)
  Receive Date: 20201231
  Receipt Date: 20210107
  Transmission Date: 20210419
  Serious: Yes (Hospitalization, Other)
  Sender: FDA-Public Use
  Company Number: GB-SA-2020SA375643

PATIENT

DRUGS (9)
  1. OXALIPLATIN. [Suspect]
     Active Substance: OXALIPLATIN
     Indication: ADENOCARCINOMA PANCREAS
     Dosage: TWO?WEEK CYCLES
     Dates: start: 202003, end: 2020
  2. OXALIPLATIN. [Suspect]
     Active Substance: OXALIPLATIN
     Dosage: UNK
     Route: 065
  3. FLUOROURACIL. [Suspect]
     Active Substance: FLUOROURACIL
     Indication: ADENOCARCINOMA PANCREAS
     Dosage: TWO?WEEK CYCLES
     Dates: start: 202003, end: 2020
  4. IRINOTECAN [Suspect]
     Active Substance: IRINOTECAN
     Dosage: UNK
  5. FOLINIC ACID [Suspect]
     Active Substance: LEUCOVORIN
     Dosage: UNK
  6. FLUOROURACIL. [Suspect]
     Active Substance: FLUOROURACIL
     Dosage: UNK
  7. IRINOTECAN [Suspect]
     Active Substance: IRINOTECAN
     Indication: ADENOCARCINOMA PANCREAS
     Dosage: TWO?WEEK CYCLES
     Dates: start: 202003, end: 2020
  8. FOLINIC ACID [Suspect]
     Active Substance: LEUCOVORIN
     Indication: ADENOCARCINOMA PANCREAS
     Dosage: TWO?WEEK CYCLES
     Dates: start: 202003, end: 2020
  9. LEVOTHYROXINE. [Concomitant]
     Active Substance: LEVOTHYROXINE
     Indication: HYPOTHYROIDISM
     Dosage: UNK

REACTIONS (16)
  - Urinary tract infection [Recovered/Resolved]
  - Acute kidney injury [Unknown]
  - Back pain [Recovered/Resolved]
  - C-reactive protein increased [Recovered/Resolved]
  - Pyrexia [Recovered/Resolved]
  - Aortitis [Recovered/Resolved]
  - Off label use [Unknown]
  - Aortic intramural haematoma [Recovered/Resolved]
  - Red blood cell sedimentation rate increased [Recovered/Resolved]
  - Rash maculo-papular [Recovered/Resolved]
  - Pleural effusion [Recovered/Resolved]
  - Vasculitis [Recovered/Resolved]
  - Haemoglobin decreased [Recovered/Resolved]
  - Mediastinal haematoma [Recovered/Resolved]
  - Klebsiella infection [Recovered/Resolved]
  - Neutropenic colitis [Unknown]
